FAERS Safety Report 5208407-X (Version None)
Quarter: 2006Q4

REPORT INFORMATION
  Report Type: 
  Country: None (occurrence: None)
  Receive Date: 20061027
  Receipt Date: 20060303
  Transmission Date: 20070319
  Serious: Yes (Other)
  Sender: FDA-Public Use
  Company Number: HQWYE927316AUG05

PATIENT
  Age: 61 Year
  Sex: Female
  Weight: 54.48 kg

DRUGS (3)
  1. PREMARIN [Suspect]
  2. MENEST [Suspect]
  3. OGEN [Suspect]

REACTIONS (1)
  - BREAST CANCER [None]
